FAERS Safety Report 4469653-6 (Version None)
Quarter: 2004Q4

REPORT INFORMATION
  Report Type: 
  Country: None (occurrence: None)
  Receive Date: 20041008
  Receipt Date: 20040929
  Transmission Date: 20050328
  Serious: Yes (Death, Life-Threatening)
  Sender: FDA-Public Use
  Company Number: 200413603FR

PATIENT
  Age: 81 Year
  Sex: Female
  Weight: 81 kg

DRUGS (1)
  1. TAXOTERE [Suspect]
     Indication: METASTATIC NEOPLASM
     Route: 042
     Dates: start: 20031008

REACTIONS (2)
  - FEBRILE BONE MARROW APLASIA [None]
  - PNEUMONIA [None]
